FAERS Safety Report 25383337 (Version 1)
Quarter: 2025Q2

REPORT INFORMATION
  Report Type: Spontaneous
  Country: US (occurrence: US)
  Receive Date: 20250602
  Receipt Date: 20250602
  Transmission Date: 20250717
  Serious: Yes (Death)
  Sender: SPECGX
  Company Number: US-SPECGX-T202500689

PATIENT
  Age: 51 Year
  Sex: Male

DRUGS (3)
  1. POSACONAZOLE [Suspect]
     Active Substance: POSACONAZOLE
     Indication: Scedosporium infection
     Route: 065
  2. VORICONAZOLE [Suspect]
     Active Substance: VORICONAZOLE
     Indication: Scedosporium infection
  3. MICAFUNGIN [Suspect]
     Active Substance: MICAFUNGIN SODIUM
     Indication: Scedosporium infection
     Route: 065

REACTIONS (2)
  - Death [Fatal]
  - Product use in unapproved indication [Unknown]
